FAERS Safety Report 5612252-0 (Version None)
Quarter: 2008Q1

REPORT INFORMATION
  Report Type: 
  Country: None (occurrence: None)
  Receive Date: 20080131
  Receipt Date: 20080131
  Transmission Date: 20080703
  Serious: Yes (Hospitalization)
  Sender: FDA-Public Use
  Company Number: None

PATIENT
  Age: 20 Year
  Sex: Female
  Weight: 63.5036 kg

DRUGS (1)
  1. TOPAMAX [Suspect]
     Indication: MIGRAINE
     Dosage: JUST INCREASED TO 2 PILLS ONCE A DAY PO
     Route: 048
     Dates: start: 20080107, end: 20080114

REACTIONS (1)
  - ANGLE CLOSURE GLAUCOMA [None]
